FAERS Safety Report 4426428-1 (Version None)
Quarter: 2004Q3

REPORT INFORMATION
  Report Type: 
  Country: None (occurrence: None)
  Receive Date: 20040811
  Receipt Date: 20040727
  Transmission Date: 20050211
  Serious: Yes (Life-Threatening, Hospitalization, Disabling, Other)
  Sender: FDA-Public Use
  Company Number: EWC040739860

PATIENT
  Age: 69 Year
  Sex: Male

DRUGS (18)
  1. GEMCITABINE HYDROCHLORIDE-IV (GEMCITABINE) [Suspect]
     Indication: LUNG NEOPLASM MALIGNANT
     Dosage: 1300 MG/5
     Dates: start: 20040430, end: 20040611
  2. CISPLATIN [Concomitant]
  3. THEOPHYLLINE [Concomitant]
  4. NIMESULIDE [Concomitant]
  5. ACEBROFYLLINE [Concomitant]
  6. COLLOIDAL ALUMINIUM HYDROXIDE [Concomitant]
  7. MEGESTROL [Concomitant]
  8. RANITIDINE [Concomitant]
  9. DOLASETRON [Concomitant]
  10. METOCLOPRAMIDE [Concomitant]
  11. FUROSEMIDE [Concomitant]
  12. DEXAMETHASONE [Concomitant]
  13. PERPHENAZINE [Concomitant]
  14. BIODIASTASE [Concomitant]
  15. BROMHEXINE [Concomitant]
  16. CEFOXITIN [Concomitant]
  17. AMIKACIN [Concomitant]
  18. NADROPARIN [Concomitant]

REACTIONS (7)
  - CEREBRAL INFARCTION [None]
  - EMBOLISM [None]
  - INTESTINAL INFARCTION [None]
  - ISCHAEMIA [None]
  - MESENTERIC OCCLUSION [None]
  - MESENTERIC VEIN THROMBOSIS [None]
  - SPLENIC INFARCTION [None]
